FAERS Safety Report 10882021 (Version 1)
Quarter: 2015Q1

REPORT INFORMATION
  Report Type: Spontaneous
  Country: FR (occurrence: FR)
  Receive Date: 20150303
  Receipt Date: 20150303
  Transmission Date: 20150721
  Serious: Yes (Hospitalization)
  Sender: FDA-Public Use
  Company Number: FR-PFIZER INC-2015071698

PATIENT
  Age: 84 Year
  Sex: Female

DRUGS (3)
  1. REVATIO [Suspect]
     Active Substance: SILDENAFIL CITRATE
     Dosage: 20 MG, DAILY
     Dates: start: 20141211
  2. TRACLEER [Concomitant]
     Active Substance: BOSENTAN\BOSENTAN MONOHYDRATE
     Dosage: UNK
     Dates: end: 20141210
  3. REVATIO [Suspect]
     Active Substance: SILDENAFIL CITRATE
     Dosage: 20 MG, 2X/DAY

REACTIONS (3)
  - Dehydration [Unknown]
  - Diarrhoea [Not Recovered/Not Resolved]
  - Condition aggravated [Recovered/Resolved]

NARRATIVE: CASE EVENT DATE: 2014
